FAERS Safety Report 21831119 (Version 5)
Quarter: 2024Q1

REPORT INFORMATION
  Report Type: Spontaneous
  Country: IT (occurrence: IT)
  Receive Date: 20230106
  Receipt Date: 20240119
  Transmission Date: 20240410
  Serious: Yes (Other)
  Sender: FDA-Public Use
  Company Number: IT-PFM-2022-09249

PATIENT
  Age: 56 Year
  Sex: Female

DRUGS (3)
  1. ENCORAFENIB [Suspect]
     Active Substance: ENCORAFENIB
     Indication: Metastatic malignant melanoma
     Dosage: 450 MG, 1X/DAY, STANDARD DOSE
     Route: 065
  2. BINIMETINIB [Suspect]
     Active Substance: BINIMETINIB
     Indication: Metastatic malignant melanoma
     Dosage: 45 MG, 2X/DAY, STANDARD DOSE
     Route: 065
  3. BINIMETINIB [Suspect]
     Active Substance: BINIMETINIB
     Dosage: 3 DF, DAILY

REACTIONS (5)
  - Subretinal fluid [Recovered/Resolved]
  - Optic nerve cupping [Recovered/Resolved]
  - Maculopathy [Recovered/Resolved]
  - Retinal depigmentation [Recovered/Resolved]
  - Vision blurred [Recovered/Resolved]
